FAERS Safety Report 14765770 (Version 2)
Quarter: 2018Q3

REPORT INFORMATION
  Report Type: Report from Study
  Country: IT (occurrence: IT)
  Receive Date: 20180416
  Receipt Date: 20180720
  Transmission Date: 20181010
  Serious: Yes (Death)
  Sender: FDA-Public Use
  Company Number: IT-PFIZER INC-2018153028

PATIENT

DRUGS (15)
  1. ARACYTIN [Suspect]
     Active Substance: CYTARABINE
     Indication: LYMPHOMA
     Dosage: 2G/M2 , CYCLIC 2X/DAY FOR 6 DAYS
  2. PREDNISONE. [Suspect]
     Active Substance: PREDNISONE
     Dosage: UNK, CYCLIC (DISCONTINUED WITH TAPERING
  3. RITUXIMAB. [Suspect]
     Active Substance: RITUXIMAB
     Indication: LYMPHOMA
     Dosage: 375 MG/M2, CYCLIC PER DOSE (DAY +2 AND +10)
  4. DOXORUBICIN HCL [Suspect]
     Active Substance: DOXORUBICIN HYDROCHLORIDE
     Dosage: 75 MG/M2, CYCLIC (ON DAY 14 AND 28)
  5. ETOPOSIDE. [Suspect]
     Active Substance: ETOPOSIDE
     Indication: LYMPHOMA
     Dosage: 2.4 G/M2, CYCLIC (DAY +1)
  6. PREDNISONE. [Suspect]
     Active Substance: PREDNISONE
     Indication: LYMPHOMA
     Dosage: 50 MG/M2, CYCLIC (DAYS 1?22)
  7. RITUXIMAB. [Suspect]
     Active Substance: RITUXIMAB
     Dosage: 375 MG/M2, CYCLIC (DAY+8, AND DAY+ 18)
  8. MELPHALAN. [Suspect]
     Active Substance: MELPHALAN
     Indication: LYMPHOMA
     Dosage: 180 MG/M2, CYCLIC (ON DAY ?2)
  9. CISPLATIN. [Suspect]
     Active Substance: CISPLATIN
     Indication: LYMPHOMA
     Dosage: 100 MG/M2, CYCLIC (DAY +2)
  10. MITOXANTRONE [Suspect]
     Active Substance: MITOXANTRONE HYDROCHLORIDE
     Indication: LYMPHOMA
     Dosage: 60 MG/M2, CYCLIC (ON DAY ?5)
  11. TRIMETOPRIM SULFAMETOXAZOL [Concomitant]
     Active Substance: SULFAMETHOXAZOLE\TRIMETHOPRIM
     Indication: PROPHYLAXIS
     Dosage: UNK 1600/ 320 MG,, 2X/WEEK
  12. ACICLOVIR [Concomitant]
     Active Substance: ACYCLOVIR
     Indication: ANTIVIRAL PROPHYLAXIS
     Dosage: 1600 MG, DAILY +90 DAYS AFTER AUTOTRANSPLANT
  13. VINCRISTINE SULFATE. [Suspect]
     Active Substance: VINCRISTINE SULFATE
     Indication: LYMPHOMA
     Dosage: 1.20 MG/M2, CYCLIC (ON DAYS 1, 14, 28)
  14. DOXORUBICIN HCL [Suspect]
     Active Substance: DOXORUBICIN HYDROCHLORIDE
     Indication: LYMPHOMA
     Dosage: 50 MG/M2, CYCLIC (ON DAY 1)
  15. CYCLOPHOSPHAMIDE. [Suspect]
     Active Substance: CYCLOPHOSPHAMIDE
     Indication: LYMPHOMA
     Dosage: 7 G/M2, CYCLIC (DAY 1)

REACTIONS (2)
  - Second primary malignancy [Fatal]
  - Myelodysplastic syndrome [Fatal]
